FAERS Safety Report 16188782 (Version 1)
Quarter: 2019Q2

REPORT INFORMATION
  Report Type: Spontaneous
  Country: KR (occurrence: KR)
  Receive Date: 20190412
  Receipt Date: 20190412
  Transmission Date: 20190711
  Serious: Yes (Other)
  Sender: FDA-Public Use
  Company Number: KR-SA-2019SA101391

PATIENT
  Sex: Female

DRUGS (1)
  1. THYROGEN [Suspect]
     Active Substance: THYROTROPIN ALFA
     Dosage: 0.9 MG, UNK
     Route: 030
     Dates: start: 201811, end: 201811

REACTIONS (2)
  - Musculoskeletal pain [Not Recovered/Not Resolved]
  - Paralysis [Not Recovered/Not Resolved]
